FAERS Safety Report 4453076-X (Version None)
Quarter: 2004Q3

REPORT INFORMATION
  Report Type: 
  Country: None (occurrence: None)
  Receive Date: 20040813
  Receipt Date: 20040511
  Transmission Date: 20050211
  Serious: No
  Sender: FDA-Public Use
  Company Number: S04-USA-03292-01

PATIENT
  Age: 79 Year
  Sex: Female

DRUGS (14)
  1. NAMENDA [Suspect]
     Indication: DEMENTIA ALZHEIMER'S TYPE
     Dosage: 15 MG QD PO
     Route: 048
     Dates: start: 20040510
  2. NAMENDA [Suspect]
     Indication: DEMENTIA ALZHEIMER'S TYPE
     Dosage: 5 MG QD PO
     Route: 048
     Dates: start: 20040426, end: 20040502
  3. NAMENDA [Suspect]
     Indication: DEMENTIA ALZHEIMER'S TYPE
     Dosage: 10 MG QD PO
     Route: 048
     Dates: start: 20040503, end: 20040509
  4. REMINYL [Concomitant]
  5. DILTIAZEM [Concomitant]
  6. LIPIROT (ATORVASTATIN) [Concomitant]
  7. TRIAMTERENE/HYDROCHLOROTHIAZIDE (HYDROCHLOROTHIAZIDE/TRIAMTERENE) [Concomitant]
  8. ZOLOFT (QUETIAPINE FUMARATE) [Concomitant]
  9. SEROQUEL [Concomitant]
  10. LORAZEPAM [Concomitant]
  11. KLOR-CON [Concomitant]
  12. ACTONEL [Concomitant]
  13. OSCAL (CALCIUM CARBONATE) [Concomitant]
  14. VITAMIN E [Concomitant]

REACTIONS (2)
  - CONSTIPATION [None]
  - DIZZINESS [None]
